FAERS Safety Report 17853233 (Version 4)
Quarter: 2024Q1

REPORT INFORMATION
  Report Type: Report from Study
  Country: US (occurrence: US)
  Receive Date: 20200603
  Receipt Date: 20240129
  Transmission Date: 20240409
  Serious: Yes (Hospitalization)
  Sender: FDA-Public Use
  Company Number: US-SHIRE-US202017941

PATIENT
  Sex: Male
  Weight: 95 kg

DRUGS (59)
  1. HUMAN IMMUNOGLOBULIN G [Suspect]
     Active Substance: HUMAN IMMUNOGLOBULIN G
     Indication: Plasma cell myeloma
     Dosage: 40 GRAM, MONTHLY
     Route: 042
     Dates: start: 20190204
  2. HUMAN IMMUNOGLOBULIN G [Suspect]
     Active Substance: HUMAN IMMUNOGLOBULIN G
     Indication: Immunodeficiency common variable
  3. CUVITRU [Suspect]
     Active Substance: HUMAN IMMUNOGLOBULIN G
     Indication: Plasma cell myeloma
     Dosage: 10 GRAM, 1/WEEK
     Route: 058
     Dates: start: 20210204
  4. NINLARO [Concomitant]
     Active Substance: IXAZOMIB CITRATE
     Indication: Product used for unknown indication
     Route: 065
  5. ACETAMINOPHEN [Concomitant]
     Active Substance: ACETAMINOPHEN
     Indication: Product used for unknown indication
     Route: 065
  6. DIPHENHYDRAMINE HYDROCHLORIDE [Concomitant]
     Active Substance: DIPHENHYDRAMINE HYDROCHLORIDE
     Indication: Product used for unknown indication
     Route: 065
  7. HEPARIN [Concomitant]
     Active Substance: HEPARIN SODIUM
     Indication: Product used for unknown indication
     Route: 065
  8. LIDOCAINE [Concomitant]
     Active Substance: LIDOCAINE
     Indication: Product used for unknown indication
     Route: 065
  9. SODIUM CHLORIDE [Concomitant]
     Active Substance: SODIUM CHLORIDE
     Indication: Product used for unknown indication
     Route: 065
  10. EPINEPHRINE [EPINEPHRINE HYDROCHLORIDE] [Concomitant]
     Indication: Product used for unknown indication
     Route: 065
  11. FISH OIL [Concomitant]
     Active Substance: FISH OIL
     Indication: Product used for unknown indication
     Route: 065
  12. LOSARTAN [Concomitant]
     Active Substance: LOSARTAN
     Indication: Product used for unknown indication
     Route: 065
  13. LASIX [Concomitant]
     Active Substance: FUROSEMIDE
     Indication: Product used for unknown indication
     Route: 065
  14. ELIQUIS [Concomitant]
     Active Substance: APIXABAN
     Indication: Product used for unknown indication
     Route: 065
  15. FLECAINIDE ACETATE [Concomitant]
     Active Substance: FLECAINIDE ACETATE
     Indication: Product used for unknown indication
     Route: 065
  16. MONTELUKAST [Concomitant]
     Active Substance: MONTELUKAST SODIUM
     Indication: Product used for unknown indication
     Route: 065
  17. AZELASTINE [Concomitant]
     Active Substance: AZELASTINE\AZELASTINE HYDROCHLORIDE
     Indication: Product used for unknown indication
     Route: 065
  18. SOOLANTRA [Concomitant]
     Active Substance: IVERMECTIN
     Indication: Product used for unknown indication
     Route: 065
  19. TESTOSTERONE [Concomitant]
     Active Substance: TESTOSTERONE
     Indication: Product used for unknown indication
     Route: 065
  20. SENNAPLUS [Concomitant]
     Indication: Product used for unknown indication
     Route: 065
  21. CALCIUM CARBONATE [Concomitant]
     Active Substance: CALCIUM CARBONATE
     Indication: Product used for unknown indication
     Route: 065
  22. VITAMIN D3 [Concomitant]
     Active Substance: CHOLECALCIFEROL
     Indication: Product used for unknown indication
     Route: 065
  23. B COMPLEX WITH VITAMIN C [ASCORBIC ACID;CALCIUM PANTOTHENATE;NICOTINAM [Concomitant]
     Indication: Product used for unknown indication
     Route: 065
  24. TRETINOIN [Concomitant]
     Active Substance: TRETINOIN
     Indication: Product used for unknown indication
     Route: 065
  25. DOVONEX [Concomitant]
     Active Substance: CALCIPOTRIENE
     Indication: Product used for unknown indication
     Route: 065
  26. NEXIUM [Concomitant]
     Active Substance: ESOMEPRAZOLE MAGNESIUM
     Indication: Product used for unknown indication
     Route: 065
  27. PROAIR RESPICLICK [Concomitant]
     Active Substance: ALBUTEROL SULFATE
     Indication: Product used for unknown indication
     Route: 065
  28. FLUOROURACIL [Concomitant]
     Active Substance: FLUOROURACIL
     Indication: Product used for unknown indication
     Route: 065
  29. ALPRAZOLAM [Concomitant]
     Active Substance: ALPRAZOLAM
     Indication: Product used for unknown indication
     Route: 065
  30. CYMBALTA [Concomitant]
     Active Substance: DULOXETINE HYDROCHLORIDE
     Indication: Product used for unknown indication
     Route: 065
  31. CIALIS [Concomitant]
     Active Substance: TADALAFIL
     Indication: Product used for unknown indication
     Route: 065
  32. METOPROLOL [Concomitant]
     Active Substance: METOPROLOL
     Indication: Product used for unknown indication
     Route: 065
  33. VITAMIN B12 [Concomitant]
     Active Substance: CYANOCOBALAMIN
     Indication: Product used for unknown indication
     Route: 065
  34. ACYCLOVIR [Concomitant]
     Active Substance: ACYCLOVIR
     Indication: Product used for unknown indication
     Route: 065
  35. METFORMIN [Concomitant]
     Active Substance: METFORMIN HYDROCHLORIDE
     Indication: Product used for unknown indication
     Route: 065
  36. MAGNESIUM [Concomitant]
     Active Substance: MAGNESIUM
     Indication: Product used for unknown indication
     Route: 065
  37. METOPROLOL TARTRATE [Concomitant]
     Active Substance: METOPROLOL TARTRATE
     Indication: Product used for unknown indication
     Route: 065
  38. REVLIMID [Concomitant]
     Active Substance: LENALIDOMIDE
     Indication: Product used for unknown indication
     Route: 065
  39. Lmx [Concomitant]
  40. PFIZER-BIONTECH COVID-19 VACCINE [Concomitant]
     Active Substance: TOZINAMERAN
  41. TADALAFIL [Concomitant]
     Active Substance: TADALAFIL
  42. VITAMIN B [Concomitant]
     Active Substance: VITAMIN B
  43. CHOLESTYRAMINE [Concomitant]
     Active Substance: CHOLESTYRAMINE
  44. VASCEPA [Concomitant]
     Active Substance: ICOSAPENT ETHYL
  45. LUTEIN [Concomitant]
     Active Substance: LUTEIN
  46. POTASSIUM CHLORIDE [Concomitant]
     Active Substance: POTASSIUM CHLORIDE
  47. ATORVASTATIN [Concomitant]
     Active Substance: ATORVASTATIN
  48. CALCIUM [Concomitant]
     Active Substance: CALCIUM
  49. ANTACID [Concomitant]
     Active Substance: ALUMINUM HYDROXIDE\CALCIUM CARBONATE\DIMETHICONE\MAGNESIUM HYDROXIDE
  50. ENOXAPARIN [Concomitant]
     Active Substance: ENOXAPARIN
  51. MAGNESIUM CITRATE [Concomitant]
     Active Substance: MAGNESIUM CITRATE
  52. ATORVASTATIN CALCIUM [Concomitant]
     Active Substance: ATORVASTATIN CALCIUM
  53. CALCIUM\CHOLECALCIFEROL [Concomitant]
     Active Substance: CALCIUM\CHOLECALCIFEROL
  54. METFORMIN HYDROCHLORIDE [Concomitant]
     Active Substance: METFORMIN HYDROCHLORIDE
  55. LIPITOR [Concomitant]
     Active Substance: ATORVASTATIN CALCIUM
  56. MONTELUKAST SODIUM [Concomitant]
     Active Substance: MONTELUKAST SODIUM
  57. ENOXAPARIN SODIUM [Concomitant]
     Active Substance: ENOXAPARIN SODIUM
  58. LOSARTAN POTASSIUM [Concomitant]
     Active Substance: LOSARTAN POTASSIUM
  59. CHOLESTYRAMINE [Concomitant]
     Active Substance: CHOLESTYRAMINE

REACTIONS (8)
  - Surgery [Unknown]
  - Neck pain [Unknown]
  - Memory impairment [Unknown]
  - Injection site erythema [Unknown]
  - Influenza like illness [Unknown]
  - Inappropriate schedule of product administration [Unknown]
  - Product use in unapproved indication [Unknown]
  - Product dose omission issue [Unknown]
